FAERS Safety Report 6416228-5 (Version None)
Quarter: 2009Q4

REPORT INFORMATION
  Report Type: 
  Country: None (occurrence: None)
  Receive Date: 20091027
  Receipt Date: 20091016
  Transmission Date: 20100525
  Serious: Yes (Death)
  Sender: FDA-Public Use
  Company Number: KR-PFIZER INC-2009284606

PATIENT
  Age: 62 Year

DRUGS (9)
  1. VORICONAZOLE [Suspect]
     Indication: ASPERGILLOSIS
     Dosage: 300 MG, 2X/DAY
     Route: 042
     Dates: start: 20070407, end: 20070407
  2. VORICONAZOLE [Suspect]
     Dosage: 200 MG, 2X/DAY
     Route: 042
     Dates: start: 20070408, end: 20070409
  3. METRONIDAZOLE [Concomitant]
     Indication: PSEUDOMEMBRANOUS COLITIS
     Dosage: 500 MG, 4X/DAY
     Route: 048
     Dates: start: 20070217, end: 20070410
  4. MEROPENEM [Concomitant]
     Indication: INFECTION
     Dosage: 2 G, 3X/DAY
     Route: 042
     Dates: start: 20070216, end: 20070410
  5. TEICOPLANIN [Concomitant]
     Indication: PNEUMONIA
     Dosage: 200 MG, 1X/DAY
     Route: 042
     Dates: start: 20070216, end: 20070410
  6. TRIMETHOPRIM [Concomitant]
     Indication: PROPHYLAXIS
     Dosage: 960 MG, 2X/DAY
     Route: 048
     Dates: start: 20070303, end: 20070408
  7. DILTIAZEM [Concomitant]
     Indication: HYPERTENSION
     Dosage: 90 MG, 2X/DAY
     Route: 048
     Dates: start: 20070217, end: 20070407
  8. DILTIAZEM [Concomitant]
     Indication: ATRIAL FIBRILLATION
  9. ACETYLSALICYLIC ACID [Concomitant]
     Indication: INFECTION
     Dosage: 100 MG, 1X/DAY
     Route: 048
     Dates: start: 20070322, end: 20070408

REACTIONS (1)
  - DEATH [None]
